FAERS Safety Report 13122667 (Version 2)
Quarter: 2017Q1

REPORT INFORMATION
  Report Type: Spontaneous
  Country: US (occurrence: US)
  Receive Date: 20170117
  Receipt Date: 20170207
  Transmission Date: 20170428
  Serious: Yes (Other)
  Sender: FDA-Public Use
  Company Number: US-ASTRAZENECA-2017SE02728

PATIENT
  Sex: Female

DRUGS (10)
  1. IBRANCE [Suspect]
     Active Substance: PALBOCICLIB
     Route: 048
  2. HYDROCODONE [Suspect]
     Active Substance: HYDROCODONE
     Indication: PAIN
     Dosage: HALF OF A TABLET
     Route: 065
  3. LETROZOLE. [Suspect]
     Active Substance: LETROZOLE
     Route: 065
  4. FENTANYL. [Suspect]
     Active Substance: FENTANYL
     Route: 065
  5. TAMOXIFEN [Suspect]
     Active Substance: TAMOXIFEN
     Route: 048
  6. GABAPENTIN. [Concomitant]
     Active Substance: GABAPENTIN
  7. FASLODEX [Suspect]
     Active Substance: FULVESTRANT
     Route: 030
  8. FASLODEX [Suspect]
     Active Substance: FULVESTRANT
     Dosage: ONCE A MONTH
     Route: 030
  9. IBRANCE [Suspect]
     Active Substance: PALBOCICLIB
     Route: 048
  10. LYRICA [Suspect]
     Active Substance: PREGABALIN
     Dosage: 50.0MG UNKNOWN
     Route: 065

REACTIONS (7)
  - Insomnia [Unknown]
  - Headache [Unknown]
  - Pain [Not Recovered/Not Resolved]
  - Dysstasia [Unknown]
  - Malignant neoplasm progression [Unknown]
  - Dizziness [Not Recovered/Not Resolved]
  - Back pain [Unknown]
